FAERS Safety Report 9434580 (Version 1)
Quarter: 2013Q3

REPORT INFORMATION
  Report Type: Spontaneous
  Country: US (occurrence: None)
  Receive Date: 20130731
  Receipt Date: 20130731
  Transmission Date: 20140515
  Serious: Yes (Hospitalization)
  Sender: FDA-Public Use
  Company Number: None

PATIENT
  Age: 54 Year
  Sex: Male
  Weight: 121 kg

DRUGS (6)
  1. XARELTO [Suspect]
     Indication: KNEE ARTHROPLASTY
     Route: 048
     Dates: start: 20130718, end: 20130729
  2. DIAZEPAM [Concomitant]
  3. OXYCODONE [Concomitant]
  4. LISINOPRIL/HYDROCHLOROTHIAZIDE [Concomitant]
  5. HYDROMORPHONE [Concomitant]
  6. TRAMADOL [Concomitant]

REACTIONS (5)
  - Adrenal haemorrhage [None]
  - Pallor [None]
  - Hyperhidrosis [None]
  - Abdominal pain [None]
  - Chest pain [None]
